FAERS Safety Report 17712473 (Version 3)
Quarter: 2020Q4

REPORT INFORMATION
  Report Type: Spontaneous
  Country: US (occurrence: US)
  Receive Date: 20200427
  Receipt Date: 20201009
  Transmission Date: 20210113
  Serious: Yes (Hospitalization, Other)
  Sender: FDA-Public Use
  Company Number: US-GILEAD-2020-0461294

PATIENT
  Age: 53 Year
  Sex: Male

DRUGS (3)
  1. DESCOVY [Concomitant]
     Active Substance: EMTRICITABINE\TENOFOVIR ALAFENAMIDE FUMARATE
  2. VIREAD [Suspect]
     Active Substance: TENOFOVIR DISOPROXIL FUMARATE
     Indication: HIV INFECTION
     Dosage: UNK
     Route: 048
     Dates: start: 2008, end: 2019
  3. TRUVADA [Suspect]
     Active Substance: EMTRICITABINE\TENOFOVIR DISOPROXIL FUMARATE
     Indication: HIV INFECTION
     Dosage: UNK
     Route: 048
     Dates: start: 200809, end: 201306

REACTIONS (8)
  - Osteonecrosis [Unknown]
  - Renal injury [Not Recovered/Not Resolved]
  - Bone loss [Not Recovered/Not Resolved]
  - Osteoporosis [Not Recovered/Not Resolved]
  - Multiple fractures [Unknown]
  - Chronic kidney disease [Unknown]
  - Renal failure [Unknown]
  - Bone density decreased [Unknown]

NARRATIVE: CASE EVENT DATE: 20180601
